FAERS Safety Report 5357894-5 (Version None)
Quarter: 2007Q2

REPORT INFORMATION
  Report Type: 
  Country: None (occurrence: None)
  Receive Date: 20070612
  Receipt Date: 20070601
  Transmission Date: 20071010
  Serious: Yes (Hospitalization)
  Sender: FDA-Public Use
  Company Number: 2007BI011390

PATIENT
  Age: 69 Year
  Sex: Male
  Weight: 75.2971 kg

DRUGS (2)
  1. ZEVALIN [Suspect]
     Indication: NON-HODGKIN'S LYMPHOMA
     Dosage: 1X; IV
     Route: 042
     Dates: start: 20070327
  2. RITUXIMAB [Concomitant]

REACTIONS (7)
  - BLOOD PRESSURE DECREASED [None]
  - DECREASED APPETITE [None]
  - DEHYDRATION [None]
  - DISEASE PROGRESSION [None]
  - DIZZINESS [None]
  - HYPERCALCAEMIA [None]
  - NON-HODGKIN'S LYMPHOMA RECURRENT [None]
